FAERS Safety Report 4863315-9 (Version None)
Quarter: 2005Q4

REPORT INFORMATION
  Report Type: 
  Country: None (occurrence: None)
  Receive Date: 20051219
  Receipt Date: 20051219
  Transmission Date: 20060501
  Serious: Yes (Other)
  Sender: FDA-Public Use
  Company Number: None

PATIENT
  Age: 57 Year
  Sex: Male

DRUGS (2)
  1. DEPAKOTE [Suspect]
     Dosage: 3 PO BID
     Route: 048
     Dates: start: 20050202, end: 20050210
  2. DEPAKOTE [Suspect]
     Dosage: 3 PO BID
     Route: 048
     Dates: start: 20050210

REACTIONS (3)
  - DRUG DISPENSING ERROR [None]
  - INCORRECT DOSE ADMINISTERED [None]
  - MEDICATION ERROR [None]
